FAERS Safety Report 6037795-X (Version None)
Quarter: 2009Q1

REPORT INFORMATION
  Report Type: 
  Country: None (occurrence: None)
  Receive Date: 20090113
  Receipt Date: 20081218
  Transmission Date: 20090719
  Serious: Yes (Life-Threatening)
  Sender: FDA-Public Use
  Company Number: 134382

PATIENT
  Age: 47 Year
  Sex: Male

DRUGS (1)
  1. CYTARABINE [Suspect]

REACTIONS (1)
  - INTESTINAL PERFORATION [None]
